FAERS Safety Report 25132471 (Version 3)
Quarter: 2025Q2

REPORT INFORMATION
  Report Type: Spontaneous
  Country: US (occurrence: US)
  Receive Date: 20250328
  Receipt Date: 20250424
  Transmission Date: 20250717
  Serious: Yes (Other)
  Sender: GLENMARK
  Company Number: US-GLENMARK PHARMACEUTICALS-2025GMK098987

PATIENT

DRUGS (2)
  1. OLMESARTAN MEDOXOMIL [Suspect]
     Active Substance: OLMESARTAN MEDOXOMIL
     Indication: Product used for unknown indication
     Dosage: 1 DOSAGE FORM, QD (ONE 20 MG PILL DAILY)
     Route: 048
  2. OLMESARTAN MEDOXOMIL [Suspect]
     Active Substance: OLMESARTAN MEDOXOMIL
     Dosage: 1 DOSAGE FORM, BID (TO BE TAKEN TWICE DAILY ONCE IN THE MORNING AND ONCE IN THE EVENING )
     Route: 048

REACTIONS (3)
  - Hypertension [Unknown]
  - Therapeutic response decreased [Unknown]
  - Product use issue [Unknown]
